FAERS Safety Report 14329393 (Version 4)
Quarter: 2018Q1

REPORT INFORMATION
  Report Type: Report from Study
  Country: JP (occurrence: JP)
  Receive Date: 20171227
  Receipt Date: 20180329
  Transmission Date: 20180509
  Serious: Yes (Hospitalization)
  Sender: FDA-Public Use
  Company Number: JP-PFIZER INC-2017539361

PATIENT
  Age: 65 Year
  Sex: Male
  Weight: 59 kg

DRUGS (15)
  1. THYRADIN S [Concomitant]
     Active Substance: LEVOTHYROXINE SODIUM
     Indication: HYPOTHYROIDISM
     Dosage: 100 UG, 1X/DAY
     Route: 048
     Dates: start: 20171129
  2. OXINORM /00045603/ [Concomitant]
     Active Substance: OXYCODONE HYDROCHLORIDE
     Indication: CANCER PAIN
     Dosage: 10 MG, AS NEEDED
     Route: 048
     Dates: start: 20170509
  3. LYRICA [Suspect]
     Active Substance: PREGABALIN
     Indication: CANCER PAIN
     Dosage: 150 MG, DAILY
     Route: 048
     Dates: start: 20171115
  4. RIVOTRIL [Suspect]
     Active Substance: CLONAZEPAM
     Indication: CANCER PAIN
     Dosage: 0.5 MG, UNK
     Route: 048
     Dates: start: 20171115
  5. CANDESARTAN. [Concomitant]
     Active Substance: CANDESARTAN
     Indication: HYPERTENSION
     Dosage: 8 MG, 1X/DAY
     Route: 048
     Dates: start: 20170629
  6. TRANEXAMIC ACID. [Concomitant]
     Active Substance: TRANEXAMIC ACID
     Indication: HAEMOPTYSIS
     Dosage: 250 MG, 3X/DAY
     Route: 048
     Dates: start: 20171129
  7. LENVATINIB MESILATE [Suspect]
     Active Substance: LENVATINIB MESYLATE
     Indication: NEOPLASM OF THYMUS
     Dosage: 24 MG, 1X/DAY
     Route: 048
     Dates: start: 20170517, end: 20170614
  8. LENVATINIB MESILATE [Suspect]
     Active Substance: LENVATINIB MESYLATE
     Dosage: 10 MG, 1X/DAY
     Route: 048
     Dates: start: 20171004
  9. DRENISON /00182901/ [Concomitant]
     Indication: CANCER PAIN
     Dosage: UNK
     Route: 061
     Dates: start: 20171025
  10. OXYCONTIN [Concomitant]
     Active Substance: OXYCODONE HYDROCHLORIDE
     Indication: CANCER PAIN
     Dosage: 50 MG, DAILY
     Route: 048
     Dates: start: 20170501
  11. LENVATINIB MESILATE [Suspect]
     Active Substance: LENVATINIB MESYLATE
     Dosage: 14 MG, 1X/DAY
     Route: 048
     Dates: start: 20170803, end: 20170920
  12. AMLODIPINE [Concomitant]
     Active Substance: AMLODIPINE BESYLATE
     Indication: HYPERTENSION
     Dosage: 5 MG, 1X/DAY
     Route: 048
     Dates: start: 20170712
  13. CARBAZOCHROME SODIUM SULFONATE [Concomitant]
     Active Substance: CARBAZOCHROME SODIUM SULFONATE
     Indication: HAEMOPTYSIS
     Dosage: 90 MG, DAILY
     Route: 048
     Dates: start: 20171129
  14. LENVATINIB MESILATE [Suspect]
     Active Substance: LENVATINIB MESYLATE
     Dosage: 20 MG, 1X/DAY
     Route: 048
     Dates: start: 20170630, end: 20170726
  15. SEPAMIT-R [Concomitant]
     Active Substance: NIFEDIPINE
     Indication: HYPERTENSION
     Dosage: 10 MG, AS NEEDED
     Route: 048
     Dates: start: 20170712

REACTIONS (1)
  - Pneumonitis [Recovering/Resolving]

NARRATIVE: CASE EVENT DATE: 20171213
